FAERS Safety Report 19089982 (Version 1)
Quarter: 2021Q2

REPORT INFORMATION
  Report Type: Spontaneous
  Country: US (occurrence: US)
  Receive Date: 20210404
  Receipt Date: 20210404
  Transmission Date: 20210717
  Serious: Yes (Life-Threatening, Hospitalization, Other)
  Sender: FDA-Public Use
  Company Number: US-LUPIN PHARMACEUTICALS INC.-2021-04211

PATIENT
  Age: 7 Decade
  Sex: Female

DRUGS (16)
  1. MIRTAZAPINE. [Suspect]
     Active Substance: MIRTAZAPINE
     Indication: PSYCHOTIC DISORDER
     Dosage: UNK
     Route: 065
  2. BROMOCRIPTINE [Concomitant]
     Active Substance: BROMOCRIPTINE
     Indication: NEUROLEPTIC MALIGNANT SYNDROME
     Dosage: UNK
     Route: 065
  3. FLUMAZENIL. [Concomitant]
     Active Substance: FLUMAZENIL
     Indication: ELECTROCONVULSIVE THERAPY
     Dosage: 1 MILLIGRAM
     Route: 065
  4. FLUMAZENIL. [Concomitant]
     Active Substance: FLUMAZENIL
     Dosage: 2 MILLIGRAM
     Route: 065
  5. DANTROLENE. [Concomitant]
     Active Substance: DANTROLENE SODIUM
     Indication: NEUROLEPTIC MALIGNANT SYNDROME
     Dosage: 2 MILLIGRAM/KILOGRAM, LATER DOSE INCREASED
     Route: 065
  6. DEXMEDETOMIDINE. [Concomitant]
     Active Substance: DEXMEDETOMIDINE
     Indication: NEUROLEPTIC MALIGNANT SYNDROME
     Dosage: 0.4 MICROGRAM/KILOGRAM, 0.4?1.4MICROGRAM/KG
     Route: 065
  7. AMANTADINE. [Concomitant]
     Active Substance: AMANTADINE HYDROCHLORIDE
     Indication: NEUROLEPTIC MALIGNANT SYNDROME
     Dosage: UNK
     Route: 065
  8. LORAZEPAM. [Suspect]
     Active Substance: LORAZEPAM
     Indication: NEUROLEPTIC MALIGNANT SYNDROME
     Dosage: 11 MILLIGRAM, QD
     Route: 065
  9. FLUVOXAMINE [Suspect]
     Active Substance: FLUVOXAMINE
     Indication: PSYCHOTIC DISORDER
     Dosage: UNK
     Route: 065
  10. LORAZEPAM. [Suspect]
     Active Substance: LORAZEPAM
     Dosage: 10MG TO 9 MG A DAY OVER APPROXIMATELY 4 DAYS
     Route: 065
  11. DEXMEDETOMIDINE. [Concomitant]
     Active Substance: DEXMEDETOMIDINE
     Dosage: 1.4 MICROGRAM/KILOGRAM, 0.4?1.4MICROGRAM/KG
     Route: 065
  12. ROCURONIUM [Concomitant]
     Active Substance: ROCURONIUM BROMIDE
     Indication: HYPERKALAEMIA
     Dosage: UNK
     Route: 065
  13. LORAZEPAM. [Suspect]
     Active Substance: LORAZEPAM
     Dosage: UNK, VIA NASOGASTRIC TUBE
     Route: 065
  14. HALOPERIDOL. [Suspect]
     Active Substance: HALOPERIDOL
     Indication: PSYCHOTIC DISORDER
     Dosage: 5 MILLIGRAM (TAPERED OFF OVER 2 WEEKS AND THEN STOPPED)
     Route: 065
  15. CARBIDOPA/LEVODOPA [Concomitant]
     Active Substance: CARBIDOPA\LEVODOPA
     Indication: NEUROLEPTIC MALIGNANT SYNDROME
     Dosage: UNK
     Route: 065
  16. ETOMIDATE. [Concomitant]
     Active Substance: ETOMIDATE
     Indication: ELECTROCONVULSIVE THERAPY
     Dosage: UNK
     Route: 065

REACTIONS (2)
  - Neuroleptic malignant syndrome [Recovering/Resolving]
  - Hypotension [Recovering/Resolving]
